FAERS Safety Report 11881002 (Version 2)
Quarter: 2016Q1

REPORT INFORMATION
  Report Type: Report from Study
  Country: US (occurrence: US)
  Receive Date: 20151230
  Receipt Date: 20160203
  Transmission Date: 20160526
  Serious: No
  Sender: FDA-Public Use
  Company Number: US-TAKEDA-2015TUS018865

PATIENT
  Age: 52 Year
  Sex: Female

DRUGS (1)
  1. NALTREXONE, BUPROPION [Suspect]
     Active Substance: BUPROPION HYDROCHLORIDE\NALTREXONE HYDROCHLORIDE
     Indication: OBESITY
     Dosage: 8/90 MG, UNK
     Route: 065

REACTIONS (2)
  - Nephrolithiasis [Unknown]
  - Back pain [Unknown]
